FAERS Safety Report 5619914-X (Version None)
Quarter: 2008Q1

REPORT INFORMATION
  Report Type: 
  Country: None (occurrence: None)
  Receive Date: 20080208
  Receipt Date: 20070905
  Transmission Date: 20080703
  Serious: No
  Sender: FDA-Public Use
  Company Number: US-ABBOTT-07P-163-0416234-00

PATIENT
  Age: 86 Year
  Sex: Male
  Weight: 65.83 kg

DRUGS (8)
  1. VICODIN [Suspect]
     Indication: PAIN
     Dates: end: 20070501
  2. VICODIN [Suspect]
  3. PARACETAMOL [Suspect]
     Indication: PAIN
     Dates: start: 20070501, end: 20070701
  4. FELODIPINE [Concomitant]
     Indication: CARDIOVASCULAR EVENT PROPHYLAXIS
  5. FELODIPINE [Concomitant]
     Indication: BLOOD PRESSURE
  6. GEMFIBROZIL [Concomitant]
     Indication: BLOOD CHOLESTEROL
  7. LISINOPRIL [Concomitant]
     Indication: BLOOD PRESSURE
  8. VITAMINS [Concomitant]
     Indication: ROUTINE HEALTH MAINTENANCE

REACTIONS (1)
  - RASH PRURITIC [None]
